FAERS Safety Report 5324830-7 (Version None)
Quarter: 2007Q2

REPORT INFORMATION
  Report Type: 
  Country: None (occurrence: None)
  Receive Date: 20070510
  Receipt Date: 20070510
  Transmission Date: 20071010
  Serious: Yes (Hospitalization, Disabling)
  Sender: FDA-Public Use
  Company Number: None

PATIENT
  Age: 46 Year
  Sex: Male
  Weight: 90.7194 kg

DRUGS (1)
  1. FENTANYL TRANSDERMAL SYSTEM [Suspect]
     Indication: PAIN MANAGEMENT
     Dosage: 50 MCG./HR 5.10 MG FOR 72 HOURS TRANSDERMAL
     Route: 062
     Dates: start: 20060508, end: 20061108

REACTIONS (7)
  - DISORIENTATION [None]
  - FALL [None]
  - FATIGUE [None]
  - HALLUCINATION, VISUAL [None]
  - HYPERHIDROSIS [None]
  - SOMNOLENCE [None]
  - VISION BLURRED [None]
